FAERS Safety Report 8270579-0 (Version None)
Quarter: 2012Q2

REPORT INFORMATION
  Report Type: 
  Country: None (occurrence: None)
  Receive Date: 20120410
  Receipt Date: 20120402
  Transmission Date: 20120825
  Serious: Yes (Life-Threatening, Hospitalization, Other)
  Sender: FDA-Public Use
  Company Number: US-BRISTOL-MYERS SQUIBB COMPANY-15861164

PATIENT
  Age: 62 Year
  Sex: Female
  Weight: 88 kg

DRUGS (11)
  1. IXABEPILONE [Suspect]
     Indication: BREAST CANCER
     Dosage: LAST DOSE:21JUN11,HOLD:21JUN11,RESUMED ON:20JUL11 DAY 1,8ON21DAY CYCLE,CYCLE:3(31MG),C208
     Route: 042
     Dates: start: 20110525
  2. CARBOPLATIN [Suspect]
     Indication: BREAST CANCER
     Dosage: LAST DOSE:21JUN11,HOLD:21JUN11,RESUMED ON:20JUL11 DAY 1,8ON21DAYCYCLE,CYCLE:3(31MG),C208
     Route: 042
     Dates: start: 20110525
  3. TRIAMTERENE AND HYDROCHLOROTHIAZIDE [Concomitant]
     Dosage: 1DF=37.5/25MG
     Route: 048
  4. LYRICA [Concomitant]
     Dosage: 1DF:150 UNITS NOS
  5. LASIX [Concomitant]
  6. COMPAZINE [Concomitant]
     Dosage: PRN
     Route: 048
  7. ATIVAN [Concomitant]
     Dosage: PRN
     Route: 048
  8. AMOXICILLIN [Concomitant]
  9. AMBIEN [Concomitant]
     Dosage: QHS
     Route: 048
  10. LORTAB [Concomitant]
     Dosage: ELIXIR 1DF=1 TEASPOON Q6HR
  11. LISINOPRIL [Concomitant]
     Dosage: 1DF:10 UNITS NOS

REACTIONS (5)
  - NEUTROPENIA [None]
  - DIZZINESS [None]
  - SEPSIS [None]
  - DIARRHOEA HAEMORRHAGIC [None]
  - HYPONATRAEMIA [None]
